FAERS Safety Report 25387935 (Version 1)
Quarter: 2025Q2

REPORT INFORMATION
  Report Type: Report from Study
  Country: US (occurrence: US)
  Receive Date: 20250603
  Receipt Date: 20250603
  Transmission Date: 20250716
  Serious: Yes (Hospitalization)
  Sender: ABBVIE
  Company Number: US-ABBVIE-6307229

PATIENT
  Sex: Male

DRUGS (2)
  1. VENETOCLAX [Suspect]
     Active Substance: VENETOCLAX
     Indication: Acute myeloid leukaemia
     Dosage: 400 MG PER DAY FOR A 28 DAY CYCLE FOR FIRST 3 CYCLES
     Route: 048
     Dates: start: 20241118, end: 20250314
  2. AZACITIDINE [Concomitant]
     Active Substance: AZACITIDINE
     Indication: Product used for unknown indication
     Dates: start: 20241118

REACTIONS (7)
  - Cardiac failure congestive [Unknown]
  - Atrial fibrillation [Unknown]
  - Nausea [Unknown]
  - Fatigue [Unknown]
  - Headache [Unknown]
  - Aspartate aminotransferase increased [Unknown]
  - Hypotension [Unknown]
